FAERS Safety Report 20766655 (Version 2)
Quarter: 2022Q2

REPORT INFORMATION
  Report Type: Report from Study
  Country: DE (occurrence: DE)
  Receive Date: 20220428
  Receipt Date: 20220503
  Transmission Date: 20220721
  Serious: Yes (Hospitalization)
  Sender: FDA-Public Use
  Company Number: DE-SA-2019SA117902

PATIENT
  Age: 55 Year
  Sex: Male
  Weight: 127 kg

DRUGS (11)
  1. DUPILUMAB [Suspect]
     Active Substance: DUPILUMAB
     Indication: Chronic spontaneous urticaria
     Dosage: 1 DF, QOW
     Route: 058
     Dates: start: 20190408, end: 20190423
  2. DUPILUMAB [Suspect]
     Active Substance: DUPILUMAB
     Indication: Chronic spontaneous urticaria
     Dosage: 1 DF, QOW
     Route: 058
     Dates: start: 20190408, end: 20190423
  3. INVESTIGATIONAL PRODUCT [Suspect]
     Active Substance: INVESTIGATIONAL PRODUCT
     Indication: Chronic spontaneous urticaria
     Dosage: 1 DF, QOW
     Route: 058
     Dates: start: 20190408, end: 20190423
  4. PLACEBO [Suspect]
     Active Substance: UNSPECIFIED INGREDIENT
     Indication: Chronic spontaneous urticaria
     Dosage: 1 DF, QOW
     Route: 058
     Dates: start: 20190408, end: 20190423
  5. APSOMOL N [Concomitant]
     Dosage: 100 MG, PRN
     Route: 055
     Dates: start: 1972
  6. LORATADINE [Concomitant]
     Active Substance: LORATADINE
     Dosage: 10 MG, QID
     Route: 048
     Dates: start: 20181225
  7. METFORMIN HYDROCHLORIDE [Concomitant]
     Active Substance: METFORMIN HYDROCHLORIDE
     Dosage: 500 MG, BID
     Route: 048
  8. TRULICITY [Concomitant]
     Active Substance: DULAGLUTIDE
     Dosage: 0.75 MG, QW
     Route: 058
     Dates: start: 2014
  9. TOUJEO [Concomitant]
     Active Substance: INSULIN GLARGINE
     Dosage: 30 IU/ML, BID, PATIENT ONJECTS HIMSELF
     Route: 058
     Dates: start: 2000
  10. FIASP [Concomitant]
     Active Substance: INSULIN ASPART
     Dosage: 100 IU/ML, PRN ACCORDING TO BLODD SUGAR, PATIENT INJECTS HIMSELF
     Route: 058
     Dates: start: 2000
  11. ACETAMINOPHEN [Concomitant]
     Active Substance: ACETAMINOPHEN
     Dosage: 500 MG, TID, IF REQUIRED
     Route: 048
     Dates: start: 20190423, end: 20190423

REACTIONS (1)
  - Injection site cellulitis [Recovered/Resolved]

NARRATIVE: CASE EVENT DATE: 20190420
